FAERS Safety Report 4402827-9 (Version None)
Quarter: 2004Q3

REPORT INFORMATION
  Report Type: 
  Country: None (occurrence: None)
  Receive Date: 20040721
  Receipt Date: 20040714
  Transmission Date: 20050211
  Serious: Yes (Death, Other)
  Sender: FDA-Public Use
  Company Number: US-BRISTOL-MYERS SQUIBB COMPANY-12643409

PATIENT
  Age: 66 Year
  Sex: Male

DRUGS (1)
  1. ERBITUX [Suspect]
     Indication: OESOPHAGEAL CANCER METASTATIC
     Dosage: 1ST INFUSION 10-JUN-04. 2ND DOSE 17-JUN-04 + 3RD DOSE 25-JUN-04 (BOTH 300 MG/M2 IV)
     Route: 042
     Dates: start: 20040617, end: 20040617

REACTIONS (3)
  - DIZZINESS [None]
  - MYOCARDIAL INFARCTION [None]
  - WHOLE BLOOD TRANSFUSION [None]
